FAERS Safety Report 7019217-5 (Version None)
Quarter: 2010Q3

REPORT INFORMATION
  Report Type: 
  Country: None (occurrence: None)
  Receive Date: 20100928
  Receipt Date: 20100920
  Transmission Date: 20110219
  Serious: Yes (Death, Life-Threatening, Hospitalization, Other)
  Sender: FDA-Public Use
  Company Number: US-AMGEN-QUU433478

PATIENT
  Sex: Male
  Weight: 65.8 kg

DRUGS (13)
  1. NPLATE [Suspect]
     Indication: IDIOPATHIC THROMBOCYTOPENIC PURPURA
     Route: 058
     Dates: start: 20090518, end: 20100301
  2. CISPLATIN [Concomitant]
     Route: 042
     Dates: start: 20090622, end: 20090921
  3. ETOPOSIDE [Concomitant]
     Route: 042
     Dates: start: 20090622, end: 20090921
  4. DIGOXIN [Concomitant]
  5. SIMVASTATIN [Concomitant]
  6. COREG [Concomitant]
  7. POTASSIUM [Concomitant]
  8. PLAVIX [Concomitant]
  9. ASPIRIN [Concomitant]
  10. PEPCID [Concomitant]
  11. LASIX [Concomitant]
  12. SPIRIVA [Concomitant]
     Route: 055
  13. ALBUTEROL [Concomitant]
     Route: 055

REACTIONS (13)
  - ACUTE MYOCARDIAL INFARCTION [None]
  - DECREASED APPETITE [None]
  - DYSPNOEA [None]
  - HAEMATURIA [None]
  - LEFT VENTRICULAR DYSFUNCTION [None]
  - LUNG CANCER METASTATIC [None]
  - METASTASES TO CENTRAL NERVOUS SYSTEM [None]
  - MOUTH HAEMORRHAGE [None]
  - PERICARDIAL EFFUSION [None]
  - PETECHIAE [None]
  - PULMONARY OEDEMA [None]
  - RESPIRATORY DISTRESS [None]
  - THROMBOCYTOPENIA [None]
